FAERS Safety Report 9056302 (Version 1)
Quarter: 2013Q1

REPORT INFORMATION
  Report Type: Spontaneous
  Country: FR (occurrence: FR)
  Receive Date: 20130204
  Receipt Date: 20130204
  Transmission Date: 20140127
  Serious: Yes (Life-Threatening)
  Sender: FDA-Public Use
  Company Number: FR-ASTRAZENECA-2013SE07183

PATIENT
  Age: 64 Year
  Sex: Male

DRUGS (15)
  1. INEXIUM [Suspect]
     Route: 048
  2. BLEOMYCINE BELLON [Suspect]
     Indication: HODGKIN^S DISEASE
     Route: 042
     Dates: start: 20120521, end: 20120924
  3. ADRIBLASTINE [Suspect]
     Indication: HODGKIN^S DISEASE
     Route: 042
     Dates: start: 20120521, end: 20120924
  4. VELBE [Suspect]
     Indication: HODGKIN^S DISEASE
     Dosage: 11.8 MG FROM C1 TO C4 AND 12 MG FROM C5 TO C10
     Route: 042
     Dates: start: 20120521, end: 20120924
  5. DETICENE [Suspect]
     Indication: HODGKIN^S DISEASE
     Dosage: 740 MG FROM C1 TO C4 AND 750 MG FROM C5 TO C10
     Route: 042
     Dates: start: 20120521, end: 20120924
  6. METHYLPREDNISOLONE [Suspect]
     Indication: HODGKIN^S DISEASE
     Dosage: 237.6 MG FROM C1 TO C4 AND 240 MG FROM C5 TO C10
     Route: 042
     Dates: start: 20120521
  7. TAHOR [Suspect]
     Route: 048
  8. COVERAM [Suspect]
     Route: 048
  9. PROCORALAN [Suspect]
     Route: 048
  10. SECTRAL [Suspect]
     Route: 048
  11. KARDEGIC [Suspect]
     Route: 048
  12. PLAVIX [Suspect]
     Route: 048
  13. XANAX [Suspect]
     Route: 048
  14. ZOPHREN [Concomitant]
     Dosage: 8 MG EVERY 15 DAYS
     Route: 042
  15. POLARAMINE [Concomitant]
     Dosage: 5 MG FROM C1 TO C4 AND AT C9
     Route: 042

REACTIONS (2)
  - Pulmonary fibrosis [Not Recovered/Not Resolved]
  - Respiratory distress [Recovered/Resolved]
